FAERS Safety Report 25108822 (Version 1)
Quarter: 2025Q1

REPORT INFORMATION
  Report Type: Spontaneous
  Country: CN (occurrence: CN)
  Receive Date: 20250322
  Receipt Date: 20250322
  Transmission Date: 20250408
  Serious: Yes (Hospitalization)
  Sender: ANI
  Company Number: None

PATIENT
  Age: 22 Year
  Sex: Female
  Weight: 73.0 kg

DRUGS (3)
  1. FLUVOXAMINE [Suspect]
     Active Substance: FLUVOXAMINE
     Indication: Depressed mood
     Route: 048
     Dates: start: 20240423
  2. FLUVOXAMINE [Suspect]
     Active Substance: FLUVOXAMINE
     Indication: Depressed mood
     Route: 048
  3. FLUVOXAMINE [Suspect]
     Active Substance: FLUVOXAMINE
     Indication: Depressed mood
     Route: 048
     Dates: start: 20250210

REACTIONS (1)
  - Dysuria [Recovering/Resolving]

NARRATIVE: CASE EVENT DATE: 20250210
